FAERS Safety Report 5494041-3 (Version None)
Quarter: 2007Q4

REPORT INFORMATION
  Report Type: 
  Country: None (occurrence: None)
  Receive Date: 20071022
  Receipt Date: 20071015
  Transmission Date: 20080405
  Serious: Yes (Death, Hospitalization)
  Sender: FDA-Public Use
  Company Number: 163-C5013-05090243

PATIENT
  Age: 80 Year
  Sex: Male
  Weight: 81 kg

DRUGS (16)
  1. CC-5013 (LENALIDOMIDE) (CAPSULES) [Suspect]
     Indication: MULTIPLE MYELOMA
     Dosage: 25 MG, QD, DAYS 1-21, Q28D, ORAL
     Route: 048
     Dates: start: 20050822, end: 20050911
  2. DEXAMETHASONE TAB [Suspect]
     Indication: MULTIPLE MYELOMA
     Dosage: 40 MG, QD, DAYS 1-4, 9-12, 17-20, Q28D, ORAL
     Route: 048
     Dates: start: 20050822, end: 20050910
  3. DURAGESIC (FENTANYL) (POULTICE OR PATCH) [Concomitant]
  4. DILAUDID [Concomitant]
  5. ATIVAN [Concomitant]
  6. IBUPROFEN [Concomitant]
  7. CARDIZEM [Concomitant]
  8. NIFEREX (POLYSACCHARIDE-IRON COMPLEX) [Concomitant]
  9. PREVACID [Concomitant]
  10. ROBITUSSIN (GUAIFENESIN) [Concomitant]
  11. COUMADIN [Concomitant]
  12. EFFEXOR [Concomitant]
  13. PERCOCET [Concomitant]
  14. ACTONEL [Concomitant]
  15. ROCEPHIN [Concomitant]
  16. GENTAMICIN [Concomitant]

REACTIONS (10)
  - CYANOSIS [None]
  - DERMATITIS BULLOUS [None]
  - DISORIENTATION [None]
  - HEART RATE INCREASED [None]
  - PAIN [None]
  - PERIPHERAL EMBOLISM [None]
  - RESPIRATORY RATE INCREASED [None]
  - RHONCHI [None]
  - SEPSIS [None]
  - STAPHYLOCOCCAL INFECTION [None]
